FAERS Safety Report 4630151-8 (Version None)
Quarter: 2005Q2

REPORT INFORMATION
  Report Type: 
  Country: None (occurrence: None)
  Receive Date: 20050406
  Receipt Date: 20050324
  Transmission Date: 20051028
  Serious: Yes (Hospitalization)
  Sender: FDA-Public Use
  Company Number: HQWYE429428MAR05

PATIENT
  Age: 55 Year
  Sex: Male

DRUGS (10)
  1. RAPAMUNE [Suspect]
     Indication: PROPHYLAXIS AGAINST TRANSPLANT REJECTION
     Dosage: 2 MG 1X PER 1 DAY, ORAL
     Route: 048
     Dates: start: 20050214
  2. CYCLOSPORINE [Concomitant]
  3. PREDNISONE [Concomitant]
  4. NYSTATIN [Concomitant]
  5. SULFAMETHOXAZOLE + TRIMETHOPRIM [Concomitant]
  6. PHENOXYMETHYL PENICILLIN (PHENOXYMETHYLPENICILLIN) [Concomitant]
  7. ATENOLOL [Concomitant]
  8. OMEPRAZOLE [Concomitant]
  9. TETRACYCLINE [Concomitant]
  10. ACETYLSALICYLIC ACID SRT [Concomitant]

REACTIONS (2)
  - COMPLICATIONS OF TRANSPLANTED KIDNEY [None]
  - ULTRASOUND ABDOMEN ABNORMAL [None]
